FAERS Safety Report 4517861-8 (Version None)
Quarter: 2004Q4

REPORT INFORMATION
  Report Type: 
  Country: None (occurrence: None)
  Receive Date: 20041203
  Receipt Date: 20040615
  Transmission Date: 20050328
  Serious: No
  Sender: FDA-Public Use
  Company Number: US-BRISTOL-MYERS SQUIBB COMPANY-12617544

PATIENT
  Age: 42 Year
  Sex: Male
  Weight: 91 kg

DRUGS (1)
  1. PROLIXIN [Suspect]
     Indication: SCHIZOPHRENIA
     Route: 051

REACTIONS (1)
  - TARDIVE DYSKINESIA [None]
